FAERS Safety Report 16286192 (Version 5)
Quarter: 2019Q2

REPORT INFORMATION
  Report Type: Spontaneous
  Country: US (occurrence: US)
  Receive Date: 20190508
  Receipt Date: 20190624
  Transmission Date: 20190711
  Serious: No
  Sender: FDA-Public Use
  Company Number: US-PFIZER INC-2019174937

PATIENT
  Age: 63 Year
  Sex: Female
  Weight: 68 kg

DRUGS (5)
  1. LYRICA [Suspect]
     Active Substance: PREGABALIN
     Dosage: 50 MG, 3X/DAY (2 CAPSULES) THRICE A DAY FOR 2 WEEKS)
     Route: 048
  2. LYRICA [Suspect]
     Active Substance: PREGABALIN
     Indication: NEUROPATHY PERIPHERAL
     Dosage: UNK
     Route: 048
     Dates: start: 2017
  3. LYRICA [Suspect]
     Active Substance: PREGABALIN
     Indication: PAIN
     Dosage: 50 MG, 3X/DAY
     Route: 048
     Dates: start: 2017
  4. LYRICA [Suspect]
     Active Substance: PREGABALIN
     Dosage: 25 MG, 3X/DAY (FOR 2 WEEKS)
     Route: 048
  5. LYRICA [Suspect]
     Active Substance: PREGABALIN
     Dosage: 75 MG, 3X/DAY ((3 CAPSULES) THREE TIMES A DAY FOR 2 WEEKS)
     Route: 048

REACTIONS (1)
  - Diplopia [Recovered/Resolved]

NARRATIVE: CASE EVENT DATE: 201702
